FAERS Safety Report 9160312 (Version 1)
Quarter: 2013Q1

REPORT INFORMATION
  Report Type: Spontaneous
  Country: BR (occurrence: BR)
  Receive Date: 20130313
  Receipt Date: 20130313
  Transmission Date: 20140127
  Serious: Yes (Other)
  Sender: FDA-Public Use
  Company Number: BR-ROCHE-1201130

PATIENT
  Age: 34 Year
  Sex: Female

DRUGS (2)
  1. XELODA [Suspect]
     Indication: BREAST CANCER STAGE IV
     Route: 065
  2. HERCEPTIN [Suspect]
     Indication: BREAST CANCER STAGE IV
     Route: 065

REACTIONS (1)
  - Blindness [Not Recovered/Not Resolved]
